FAERS Safety Report 15598181 (Version 1)
Quarter: 2018Q4

REPORT INFORMATION
  Report Type: Spontaneous
  Country: US (occurrence: US)
  Receive Date: 20181108
  Receipt Date: 20181108
  Transmission Date: 20190205
  Serious: No
  Sender: FDA-Public Use
  Company Number: US-MYLANLABS-2018M1079787

PATIENT
  Sex: Female
  Weight: 62.58 kg

DRUGS (1)
  1. ESTRADIOL TRANSDERMAL SYSTEM [Suspect]
     Active Substance: ESTRADIOL
     Indication: PRODUCT USED FOR UNKNOWN INDICATION
     Dosage: 1 DF, TWICE WEEKLY
     Route: 062

REACTIONS (7)
  - Application site swelling [Unknown]
  - Application site erythema [Unknown]
  - Application site pruritus [Unknown]
  - Application site rash [Not Recovered/Not Resolved]
  - Product quality issue [Unknown]
  - Application site irritation [Not Recovered/Not Resolved]
  - Application site inflammation [Unknown]
